FAERS Safety Report 15563171 (Version 1)
Quarter: 2018Q4

REPORT INFORMATION
  Report Type: Report from Study
  Country: US (occurrence: US)
  Receive Date: 20181029
  Receipt Date: 20181029
  Transmission Date: 20190205
  Serious: Yes (Hospitalization)
  Sender: FDA-Public Use
  Company Number: US-MYLANLABS-2018M1080193

PATIENT
  Age: 64 Year
  Sex: Female

DRUGS (13)
  1. PEGFILGRASTIM [Suspect]
     Active Substance: PEGFILGRASTIM
     Indication: PRODUCT USED FOR UNKNOWN INDICATION
     Dosage: 6 MG, CYCLE ON DAY 4 UNTIL RECOVERY OF GRANULOCYTE COUNT
     Route: 058
  2. METHOTREXATE SODIUM. [Suspect]
     Active Substance: METHOTREXATE SODIUM
     Indication: PRODUCT USED FOR UNKNOWN INDICATION
     Dosage: 50 MG/M2, CYCLE OVER 2 HRS ON DAY 1
     Route: 042
  3. RITUXIMAB. [Suspect]
     Active Substance: RITUXIMAB
     Dosage: 375 MG/M2, CYCLE
     Route: 042
  4. METHOTREXATE SODIUM. [Suspect]
     Active Substance: METHOTREXATE SODIUM
     Dosage: 200 MG/M2, CYCLE CONTINUOUS INFUSION OVER 22 HOURS ON DAY 1
     Route: 042
  5. PEGFILGRASTIM [Suspect]
     Active Substance: PEGFILGRASTIM
     Dosage: 6 MG, CYCLE ON DAY 4 UNTIL RECOVERY OF GRANULOCYTE COUNT
     Route: 058
  6. MESNA. [Suspect]
     Active Substance: MESNA
     Indication: PRODUCT USED FOR UNKNOWN INDICATION
     Dosage: 300 MG/M2, CYCLE 1,3,5,7 DAILY OVER 24 HOURS FOR 3 DAYS ON DAYS 1-3
     Route: 042
  7. INOTUZUMAB OZOGAMICIN [Suspect]
     Active Substance: INOTUZUMAB OZOGAMICIN
     Indication: ACUTE LYMPHOCYTIC LEUKAEMIA
     Dosage: 0.3 MG/M2, CYCLE OVER 1 HOUR ON DAY 3
     Route: 042
     Dates: start: 20180718
  8. CYTARABINE. [Suspect]
     Active Substance: CYTARABINE
     Indication: PRODUCT USED FOR UNKNOWN INDICATION
     Dosage: 500 MG/M2, CYCLE OVER 3 HOURS TWICE A DAYX 4 DOSES ON DAY 2 OR 3
     Route: 042
  9. DEXAMETHASONE. [Suspect]
     Active Substance: DEXAMETHASONE
     Indication: PRODUCT USED FOR UNKNOWN INDICATION
     Dosage: 20 MG, CYCLE DAILY FOR 4 DAYS ON DAYS 1-4 AND DAYS 11-14
     Route: 042
  10. INOTUZUMAB OZOGAMICIN [Suspect]
     Active Substance: INOTUZUMAB OZOGAMICIN
     Dosage: 0.3 MG/M2, CYCLE ON DAY 2 OR 3
     Route: 042
  11. RITUXIMAB. [Suspect]
     Active Substance: RITUXIMAB
     Indication: PRODUCT USED FOR UNKNOWN INDICATION
     Dosage: 375 MG/M2, CYCLE ON DAY 2 AND DAY 8 (CYCLES 1 AND 3 ONLY)
  12. CYCLOPHOSPHAMIDE. [Suspect]
     Active Substance: CYCLOPHOSPHAMIDE
     Indication: PRODUCT USED FOR UNKNOWN INDICATION
     Dosage: 150 MG/M2, CYCLE OVER 3 HOURS TWICE A DAY ON DAYS 1-3
  13. VINCRISTINE SULFATE. [Suspect]
     Active Substance: VINCRISTINE SULFATE
     Indication: PRODUCT USED FOR UNKNOWN INDICATION
     Dosage: 2 MG, CYCLE ON DAY 1 AND DAY 8 (MONTHLY FOR 1 YEAR)
     Route: 042

REACTIONS (1)
  - Hyperglycaemia [Recovered/Resolved]

NARRATIVE: CASE EVENT DATE: 20180917
